FAERS Safety Report 4925266-0 (Version None)
Quarter: 2006Q1

REPORT INFORMATION
  Report Type: 
  Country: None (occurrence: None)
  Receive Date: 20060228
  Receipt Date: 20060216
  Transmission Date: 20060701
  Serious: Yes (Other)
  Sender: FDA-Public Use
  Company Number: KR-JNJFOC-20060203929

PATIENT
  Age: 10 Year
  Sex: Female

DRUGS (4)
  1. CONCERTA OROS [Suspect]
  2. TOPAMAX [Concomitant]
  3. DEPAKOTE [Concomitant]
  4. L-CARNITINE [Concomitant]

REACTIONS (3)
  - CONVULSION [None]
  - INTENTIONAL DRUG MISUSE [None]
  - WRONG TECHNIQUE IN DRUG USAGE PROCESS [None]
